FAERS Safety Report 5420500-5 (Version None)
Quarter: 2007Q3

REPORT INFORMATION
  Report Type: 
  Country: None (occurrence: None)
  Receive Date: 20070718
  Receipt Date: 20061211
  Transmission Date: 20080115
  Serious: Yes (Hospitalization)
  Sender: FDA-Public Use
  Company Number: 2006082189

PATIENT
  Age: 71 Year
  Sex: Male
  Weight: 81.6 kg

DRUGS (2)
  1. CELEBREX [Suspect]
     Indication: ARTHRITIS
     Dosage: 200 ,MEQ (200 MG, 1 IN 1 D), ORAL
     Route: 048
     Dates: start: 20030221, end: 20030623
  2. CELEBREX [Suspect]
     Indication: PAIN
     Dosage: 200 ,MEQ (200 MG, 1 IN 1 D), ORAL
     Route: 048
     Dates: start: 20030221, end: 20030623

REACTIONS (1)
  - CEREBROVASCULAR ACCIDENT [None]
